FAERS Safety Report 8590330 (Version 2)
Quarter: 2013Q2

REPORT INFORMATION
  Report Type: Spontaneous
  Country: US (occurrence: US)
  Receive Date: 20120601
  Receipt Date: 20130517
  Transmission Date: 20140414
  Serious: Yes (Other)
  Sender: FDA-Public Use
  Company Number: US-PFIZER INC-2012129121

PATIENT
  Age: 29 Year
  Sex: Male
  Weight: 122.44 kg

DRUGS (1)
  1. CHANTIX [Suspect]
     Dosage: STARTING MONTH PACK
     Dates: start: 20090813, end: 20090908

REACTIONS (6)
  - Hallucination [Unknown]
  - Depression [Unknown]
  - Paranoia [Unknown]
  - Aggression [Unknown]
  - Anxiety [Unknown]
  - Anger [Unknown]
